FAERS Safety Report 5885146-3 (Version None)
Quarter: 2008Q3

REPORT INFORMATION
  Report Type: 
  Country: None (occurrence: None)
  Receive Date: 20080915
  Receipt Date: 20080915
  Transmission Date: 20090109
  Serious: Yes (Other)
  Sender: FDA-Public Use
  Company Number: None

PATIENT
  Age: 64 Year
  Sex: Female

DRUGS (1)
  1. ROPINIROLE [Suspect]
     Indication: PARKINSON'S DISEASE
     Dosage: 1 TABLET 3 TIMES A DAY PO
     Route: 048
     Dates: start: 20080804, end: 20080903

REACTIONS (2)
  - FATIGUE [None]
  - PHARMACEUTICAL PRODUCT COMPLAINT [None]
